FAERS Safety Report 4581844-2 (Version None)
Quarter: 2005Q1

REPORT INFORMATION
  Report Type: 
  Country: None (occurrence: None)
  Receive Date: 20050214
  Receipt Date: 20040318
  Transmission Date: 20050727
  Serious: No
  Sender: FDA-Public Use
  Company Number: US-GLAXOSMITHKLINE-A0503438A

PATIENT
  Sex: Female

DRUGS (5)
  1. LAMICTAL [Suspect]
     Indication: PARTIAL SEIZURES
     Dosage: 125MG TWICE PER DAY
     Route: 048
  2. TRILEPTAL [Concomitant]
  3. ALTACE [Concomitant]
  4. EFFEXOR [Concomitant]
  5. CLARITIN [Concomitant]

REACTIONS (1)
  - ALOPECIA [None]
